FAERS Safety Report 7174719-6 (Version None)
Quarter: 2010Q4

REPORT INFORMATION
  Report Type: 
  Country: None (occurrence: None)
  Receive Date: 20101219
  Receipt Date: 20100407
  Transmission Date: 20110411
  Serious: No
  Sender: FDA-Public Use
  Company Number: US-AMGEN-KDL404401

PATIENT

DRUGS (3)
  1. ENBREL [Suspect]
     Indication: RHEUMATOID ARTHRITIS
     Dosage: 50 MG, QWK
     Route: 058
     Dates: start: 20090824
  2. ENBREL [Suspect]
     Indication: PSORIASIS
  3. LEFLUNOMIDE [Concomitant]
     Dosage: 20 MG, QD

REACTIONS (7)
  - COUGH [None]
  - DYSGEUSIA [None]
  - DYSPEPSIA [None]
  - INCREASED UPPER AIRWAY SECRETION [None]
  - INTERVERTEBRAL DISC PROTRUSION [None]
  - MUSCULAR WEAKNESS [None]
  - OESOPHAGEAL PAIN [None]
